FAERS Safety Report 6530762-9 (Version None)
Quarter: 2010Q1

REPORT INFORMATION
  Report Type: 
  Country: None (occurrence: None)
  Receive Date: 20100108
  Receipt Date: 20090128
  Transmission Date: 20100710
  Serious: No
  Sender: FDA-Public Use
  Company Number: A0765676A

PATIENT
  Age: 68 Year
  Sex: Female

DRUGS (3)
  1. LOVAZA [Suspect]
     Indication: BLOOD CHOLESTEROL INCREASED
     Dosage: 2CAP TWICE PER DAY
     Route: 048
  2. BABY ASPIRIN [Concomitant]
  3. EVISTA [Concomitant]

REACTIONS (6)
  - ACNE [None]
  - ALOPECIA [None]
  - CARBOHYDRATE ANTIGEN 125 INCREASED [None]
  - CYST [None]
  - DRUG ADMINISTRATION ERROR [None]
  - DRY MOUTH [None]
